FAERS Safety Report 16086050 (Version 1)
Quarter: 2019Q1

REPORT INFORMATION
  Report Type: Report from Study
  Country: IT (occurrence: IT)
  Receive Date: 20190318
  Receipt Date: 20190318
  Transmission Date: 20190418
  Serious: Yes (Hospitalization, Other)
  Sender: FDA-Public Use
  Company Number: IT-MYLANLABS-2018M1082669

PATIENT
  Age: 18 Year
  Sex: Female

DRUGS (1)
  1. FEVARIN [Suspect]
     Active Substance: FLUVOXAMINE MALEATE
     Indication: PRODUCT USED FOR UNKNOWN INDICATION
     Dosage: 30 DF, TOTAL
     Route: 048
     Dates: start: 20180514, end: 20180514

REACTIONS (3)
  - Drug abuse [Unknown]
  - Vomiting [Recovering/Resolving]
  - Agitation [Recovering/Resolving]

NARRATIVE: CASE EVENT DATE: 20180514
